FAERS Safety Report 8283345-7 (Version None)
Quarter: 2012Q2

REPORT INFORMATION
  Report Type: 
  Country: None (occurrence: None)
  Receive Date: 20120413
  Receipt Date: 20120406
  Transmission Date: 20120825
  Serious: Yes (Other)
  Sender: FDA-Public Use
  Company Number: US-JNJFOC-20120403873

PATIENT
  Sex: Female

DRUGS (15)
  1. CYCLOPHOSPHAMIDE [Suspect]
     Dosage: CYCLE 3
     Route: 042
  2. DOXORUBICIN HCL [Suspect]
     Indication: BREAST CANCER
     Dosage: CYCLE 4
     Route: 042
  3. CYCLOPHOSPHAMIDE [Suspect]
     Dosage: CYCLE 2
     Route: 042
  4. CYCLOPHOSPHAMIDE [Suspect]
     Indication: BREAST CANCER
     Dosage: CYCLE 1
     Route: 042
  5. CYCLOPHOSPHAMIDE [Suspect]
     Dosage: CYCLE 4
     Route: 042
  6. DOCETAXEL [Suspect]
     Dosage: CYCLE 2
     Route: 042
  7. NOV-002 [Suspect]
     Route: 058
  8. DOCETAXEL [Suspect]
     Indication: BREAST CANCER
     Dosage: CYCLE 1
     Route: 042
  9. NOV-002 [Suspect]
     Indication: BREAST CANCER
     Dosage: LOADING DOSE 1 DAY BEFORE INITIATION OF CHEMOTHERAPY, 2 DOSES GIVEN 3 HRS APART
     Route: 042
  10. DOXORUBICIN HCL [Suspect]
     Dosage: CYCLE 3
     Route: 042
  11. DOXORUBICIN HCL [Suspect]
     Dosage: CYCLE 1
     Route: 042
  12. NOV-002 [Suspect]
     Dosage: ON DAY 1 OF EACH CYCLE OF CHEMOTHERAPY OVER 1 HR, APPROX 30 MIONS BEFORE INFUSION OF CHEMOTHERAPY
     Route: 042
  13. DOXORUBICIN HCL [Suspect]
     Dosage: CYCLE 2
     Route: 042
  14. DOCETAXEL [Suspect]
     Dosage: CYCLE 4
     Route: 042
  15. DOCETAXEL [Suspect]
     Dosage: CYCLE 3
     Route: 042

REACTIONS (1)
  - FEMORAL ARTERY OCCLUSION [None]
